FAERS Safety Report 7200292-X (Version None)
Quarter: 2010Q4

REPORT INFORMATION
  Report Type: 
  Country: None (occurrence: None)
  Receive Date: 20101228
  Receipt Date: 20101216
  Transmission Date: 20110411
  Serious: Yes (Life-Threatening, Hospitalization)
  Sender: FDA-Public Use
  Company Number: B0689630A

PATIENT
  Sex: Female
  Weight: 89 kg

DRUGS (4)
  1. LAMICTAL [Suspect]
     Indication: EPILEPSY
     Route: 048
  2. KEPPRA [Suspect]
     Indication: EPILEPSY
     Dosage: 1250MG TWICE PER DAY
     Route: 048
  3. TEGRETOL [Suspect]
     Indication: EPILEPSY
     Dosage: 400MG TWICE PER DAY
     Route: 048
  4. RIVOTRIL [Suspect]
     Dosage: 5DROP PER DAY
     Route: 048

REACTIONS (9)
  - BLOOD CALCIUM DECREASED [None]
  - CONVULSION [None]
  - DECREASED ACTIVITY [None]
  - DRUG CLEARANCE INCREASED [None]
  - DRUG EFFECT DECREASED [None]
  - DRUG EXPOSURE DURING PREGNANCY [None]
  - ELECTROCARDIOGRAM QRS COMPLEX SHORTENED [None]
  - HAEMOGLOBIN DECREASED [None]
  - SOMNOLENCE [None]
